FAERS Safety Report 5262559-4 (Version None)
Quarter: 2007Q1

REPORT INFORMATION
  Report Type: 
  Country: None (occurrence: None)
  Receive Date: 20070309
  Receipt Date: 20070309
  Transmission Date: 20070707
  Serious: Yes (Other)
  Sender: FDA-Public Use
  Company Number: None

PATIENT
  Age: 35 Year
  Sex: Female
  Weight: 46 kg

DRUGS (13)
  1. MOXIFLOXACIN HCL [Suspect]
     Indication: SEPSIS
     Dosage: 400 MG Q 24 H IV
     Route: 042
     Dates: start: 20070205, end: 20070207
  2. PRIMAXIN [Suspect]
     Indication: JOINT ABSCESS
     Dosage: 500 MG Q 6 H IV
     Route: 042
     Dates: start: 20070205, end: 20070207
  3. METRONIDAZOLE [Concomitant]
  4. NOREPINEPHRINE BITARTRATE [Concomitant]
  5. FUROSEMIDE [Concomitant]
  6. NICOTINE [Concomitant]
  7. LORAZEPAM [Concomitant]
  8. HYDROMORPHONE HCL [Concomitant]
  9. ONDANSETRON [Concomitant]
  10. ALBUTEROL [Concomitant]
  11. IPRATROPIUM BROMIDE [Concomitant]
  12. IBUPROFEN [Concomitant]
  13. ACETAMINOPHEN [Concomitant]

REACTIONS (1)
  - RASH GENERALISED [None]
